FAERS Safety Report 4633207-9 (Version None)
Quarter: 2005Q2

REPORT INFORMATION
  Report Type: 
  Country: None (occurrence: None)
  Receive Date: 20050408
  Receipt Date: 20050329
  Transmission Date: 20051028
  Serious: Yes (Death, Hospitalization)
  Sender: FDA-Public Use
  Company Number: 2005022687

PATIENT
  Age: 67 Year
  Sex: Male
  Weight: 69 kg

DRUGS (3)
  1. IRINOTECAN HCL [Suspect]
     Indication: GASTRIC CANCER
     Dosage: 80MG/M2 (1 IN 1 WK) INTRAVENOUS
     Route: 042
     Dates: start: 20041213, end: 20050103
  2. FLUOROURACIL [Concomitant]
  3. LEUCOVORIN CALCIUM [Concomitant]

REACTIONS (6)
  - DEHYDRATION [None]
  - DIARRHOEA [None]
  - GENERAL PHYSICAL HEALTH DETERIORATION [None]
  - MULTI-ORGAN FAILURE [None]
  - RENAL FAILURE [None]
  - SEPSIS [None]
